FAERS Safety Report 5471148-8 (Version None)
Quarter: 2007Q3

REPORT INFORMATION
  Report Type: 
  Country: None (occurrence: None)
  Receive Date: 20070928
  Receipt Date: 20070907
  Transmission Date: 20080115
  Serious: Yes (Other)
  Sender: FDA-Public Use
  Company Number: FR-ROCHE-516561

PATIENT
  Sex: Male

DRUGS (4)
  1. CELLCEPT [Suspect]
     Route: 065
  2. SOLU-MEDROL [Concomitant]
  3. PROGRAF [Concomitant]
  4. ROVALCYTE [Concomitant]
     Dosage: STOPPED DUE TO NEGATIVE RESULT OF VIREMIA

REACTIONS (3)
  - DIARRHOEA [None]
  - NERVOUS SYSTEM DISORDER [None]
  - VOMITING [None]
